FAERS Safety Report 7199002-4 (Version None)
Quarter: 2010Q4

REPORT INFORMATION
  Report Type: 
  Country: None (occurrence: None)
  Receive Date: 20101228
  Receipt Date: 20060801
  Transmission Date: 20110411
  Serious: No
  Sender: FDA-Public Use
  Company Number: 2006BI011006

PATIENT
  Sex: Male

DRUGS (4)
  1. TYSABRI [Suspect]
     Indication: MULTIPLE SCLEROSIS
     Route: 042
     Dates: start: 20050110, end: 20050226
  2. TYSABRI [Suspect]
     Route: 042
     Dates: start: 20060821
  3. AVONEX [Concomitant]
     Indication: MULTIPLE SCLEROSIS
     Route: 030
     Dates: start: 19990601
  4. AVONEX [Concomitant]
     Route: 030
     Dates: end: 20060701

REACTIONS (2)
  - MUSCULOSKELETAL DISORDER [None]
  - PAIN IN EXTREMITY [None]
